FAERS Safety Report 15309267 (Version 1)
Quarter: 2018Q3

REPORT INFORMATION
  Report Type: Spontaneous
  Country: US (occurrence: US)
  Receive Date: 20180811
  Receipt Date: 20180811
  Transmission Date: 20181010
  Serious: Yes (Hospitalization)
  Sender: FDA-Public Use
  Company Number: None

PATIENT
  Age: 71 Year
  Sex: Female
  Weight: 91.4 kg

DRUGS (1)
  1. VELCADE [Suspect]
     Active Substance: BORTEZOMIB
     Dates: end: 20180707

REACTIONS (1)
  - Pulmonary sepsis [None]

NARRATIVE: CASE EVENT DATE: 20180804
